FAERS Safety Report 23129029 (Version 2)
Quarter: 2023Q4

REPORT INFORMATION
  Report Type: Spontaneous
  Country: US (occurrence: US)
  Receive Date: 20231031
  Receipt Date: 20231220
  Transmission Date: 20240110
  Serious: Yes (Other)
  Sender: FDA-Public Use
  Company Number: US-MLMSERVICE-20231013-4599092-1

PATIENT

DRUGS (5)
  1. BUDESONIDE [Suspect]
     Active Substance: BUDESONIDE
     Indication: Sinusitis
     Dosage: 0.5 MILLIGRAM, BID, (LOW DOSE-NASAL IRRIGATION)
     Route: 045
     Dates: start: 202210, end: 2022
  2. QUETIAPINE [Concomitant]
     Active Substance: QUETIAPINE
     Indication: Depression
     Dosage: UNK
     Route: 065
  3. QUETIAPINE [Concomitant]
     Active Substance: QUETIAPINE
     Indication: Anxiety
  4. ESCITALOPRAM [Concomitant]
     Active Substance: ESCITALOPRAM OXALATE
     Indication: Anxiety
     Dosage: UNK
     Route: 065
  5. ESCITALOPRAM [Concomitant]
     Active Substance: ESCITALOPRAM OXALATE
     Indication: Depression

REACTIONS (1)
  - Mania [Recovered/Resolved]

NARRATIVE: CASE EVENT DATE: 20220101
